FAERS Safety Report 5963614-3 (Version None)
Quarter: 2008Q4

REPORT INFORMATION
  Report Type: 
  Country: None (occurrence: None)
  Receive Date: 20081124
  Receipt Date: 20081110
  Transmission Date: 20090506
  Serious: Yes (Other)
  Sender: FDA-Public Use
  Company Number: IE-ROCHE-594911

PATIENT
  Sex: Male

DRUGS (2)
  1. PEGASYS [Suspect]
     Indication: HEPATITIS
     Route: 058
  2. COPEGUS [Suspect]
     Indication: HEPATITIS
     Dosage: FREQUENCY: DAILY
     Route: 048

REACTIONS (4)
  - EYE INFLAMMATION [None]
  - EYE PAIN [None]
  - FOREIGN BODY IN EYE [None]
  - VISION BLURRED [None]
